FAERS Safety Report 5892948-6 (Version None)
Quarter: 2008Q3

REPORT INFORMATION
  Report Type: 
  Country: None (occurrence: None)
  Receive Date: 20080922
  Receipt Date: 20080922
  Transmission Date: 20090109
  Serious: Yes (Hospitalization)
  Sender: FDA-Public Use
  Company Number: None

PATIENT
  Sex: Female

DRUGS (1)
  1. HUMIRA [Suspect]
     Indication: CROHN'S DISEASE
     Dosage: 40 MG QOW SQ
     Route: 058
     Dates: start: 20071001, end: 20080801

REACTIONS (2)
  - CHOLECYSTITIS INFECTIVE [None]
  - GALLBLADDER DISORDER [None]
